FAERS Safety Report 24017268 (Version 1)
Quarter: 2024Q2

REPORT INFORMATION
  Report Type: Spontaneous
  Country: IT (occurrence: IT)
  Receive Date: 20240627
  Receipt Date: 20240627
  Transmission Date: 20240716
  Serious: Yes (Other)
  Sender: FDA-Public Use
  Company Number: IT-MINISAL02-990878

PATIENT
  Age: 55 Year
  Sex: Female

DRUGS (1)
  1. DIAZEPAM [Suspect]
     Active Substance: DIAZEPAM
     Indication: Product used for unknown indication
     Dosage: 35 MILLIGRAM, 1 TOTAL
     Route: 048
     Dates: start: 20230904, end: 20230904

REACTIONS (3)
  - Logorrhoea [Recovered/Resolved]
  - Sopor [Recovered/Resolved]
  - Drug abuse [Recovered/Resolved]

NARRATIVE: CASE EVENT DATE: 20230904
